FAERS Safety Report 5285589-5 (Version None)
Quarter: 2007Q1

REPORT INFORMATION
  Report Type: 
  Country: None (occurrence: None)
  Receive Date: 20061229
  Receipt Date: 20060925
  Transmission Date: 20070707
  Serious: Yes (Other)
  Sender: FDA-Public Use
  Company Number: 2006UW18730

PATIENT
  Age: 80 Year
  Sex: Female

DRUGS (3)
  1. CRESTOR [Suspect]
  2. VASOTEC [Concomitant]
  3. TOPROL-XL [Concomitant]

REACTIONS (4)
  - ANAEMIA [None]
  - AZOTAEMIA [None]
  - BLOOD UREA INCREASED [None]
  - HAEMOGLOBIN INCREASED [None]
